FAERS Safety Report 17216474 (Version 1)
Quarter: 2019Q4

REPORT INFORMATION
  Report Type: Spontaneous
  Country: ES (occurrence: ES)
  Receive Date: 20191230
  Receipt Date: 20191230
  Transmission Date: 20200122
  Serious: Yes (Hospitalization)
  Sender: FDA-Public Use
  Company Number: ES-AUROBINDO-AUR-APL-2019-107868

PATIENT
  Age: 75 Year
  Sex: Male

DRUGS (5)
  1. RILUZOLE. [Concomitant]
     Active Substance: RILUZOLE
     Indication: AMYOTROPHIC LATERAL SCLEROSIS
     Dosage: 50 MILLIGRAM, TWO TIMES A DAY
     Route: 048
  2. METFORMINA [Concomitant]
     Active Substance: METFORMIN HYDROCHLORIDE
     Indication: DIABETES MELLITUS
     Dosage: 850 MILLIGRAM, TWO TIMES A DAY
     Route: 048
     Dates: start: 20190418
  3. GABAPENTIN. [Suspect]
     Active Substance: GABAPENTIN
     Indication: ANALGESIC THERAPY
     Dosage: 600 MILLIGRAM, 3 TIMES A DAY
     Route: 048
     Dates: start: 20190201, end: 20190823
  4. FINASTERIDE. [Concomitant]
     Active Substance: FINASTERIDE
     Indication: BENIGN PROSTATIC HYPERPLASIA
     Dosage: 5 MILLIGRAM, ONCE A DAY
     Route: 048
  5. ENALAPRIL [Concomitant]
     Active Substance: ENALAPRIL
     Indication: HYPERTENSION
     Dosage: 5 MILLIGRAM, TWO TIMES A DAY
     Route: 065
     Dates: start: 20190701

REACTIONS (2)
  - Psychomotor hyperactivity [Recovered/Resolved]
  - Behaviour disorder [Recovered/Resolved]

NARRATIVE: CASE EVENT DATE: 20190812
